FAERS Safety Report 15323587 (Version 2)
Quarter: 2018Q3

REPORT INFORMATION
  Report Type: Spontaneous
  Country: NZ (occurrence: NZ)
  Receive Date: 20180827
  Receipt Date: 20180924
  Transmission Date: 20181010
  Serious: Yes (Hospitalization)
  Sender: FDA-Public Use
  Company Number: NZ-BEH-2018093239

PATIENT
  Age: 27 Year

DRUGS (18)
  1. PANADOL [Concomitant]
     Active Substance: ACETAMINOPHEN
     Indication: PAIN
     Dosage: 1 G, QID
     Route: 050
     Dates: start: 201804
  2. COTRIMOXAZOLE [Concomitant]
     Active Substance: SULFAMETHOXAZOLE\TRIMETHOPRIM
     Indication: PNEUMONIA
     Dosage: 960 MG, ALT DAYS
     Route: 050
  3. DIAZEPAM. [Concomitant]
     Active Substance: DIAZEPAM
     Dosage: 5 MG, THREE TIMES PER DAY (TDS)
     Route: 050
     Dates: start: 20180727
  4. LAXSOL [Suspect]
     Active Substance: DOCUSATE SODIUM\SENNOSIDES A AND B
     Indication: ABDOMINAL DISCOMFORT
     Dosage: 2 TABS, BID
     Route: 050
  5. CLONIDINE. [Concomitant]
     Active Substance: CLONIDINE
     Indication: PAIN
     Dosage: 300 MG, QW
     Route: 061
  6. PROPRANOLOL [Concomitant]
     Active Substance: PROPRANOLOL HYDROCHLORIDE
     Dosage: 40 MG, THREE TIMES PER DAY (TDS)
     Route: 050
  7. VALACYCLOVIR [Concomitant]
     Active Substance: VALACYCLOVIR HYDROCHLORIDE
     Dosage: 500 MG, BD
     Route: 050
  8. LORSTAT [Concomitant]
     Active Substance: ATORVASTATIN CALCIUM
  9. GABAPENTIN. [Concomitant]
     Active Substance: GABAPENTIN
     Indication: PAIN
     Dosage: 600 MG, THREE TIMES PER DAY (TDS)
     Route: 050
  10. DIAZEPAM. [Concomitant]
     Active Substance: DIAZEPAM
     Indication: AGITATION
     Dosage: 5 MG, THREE TIMES PER DAY (TDS)
     Route: 050
     Dates: end: 201807
  11. PRIVIGEN [Suspect]
     Active Substance: HUMAN IMMUNOGLOBULIN G
     Indication: ENCEPHALITIS AUTOIMMUNE
     Dosage: 25 G, TOT
     Route: 042
     Dates: start: 20180727, end: 20180727
  12. CLONIDINE. [Concomitant]
     Active Substance: CLONIDINE
     Indication: HYPERTENSION
     Dosage: 300 MG, OD
     Route: 061
     Dates: start: 20180713
  13. LACTULOSE. [Concomitant]
     Active Substance: LACTULOSE
     Indication: ABDOMINAL DISCOMFORT
     Dosage: 15 ML, BID
     Route: 050
  14. CLEXANE [Concomitant]
     Active Substance: ENOXAPARIN SODIUM
  15. FLUTICASONE. [Concomitant]
     Active Substance: FLUTICASONE
     Dosage: 2 SPRAYS, BID
     Route: 045
  16. PROPRANOLOL [Concomitant]
     Active Substance: PROPRANOLOL HYDROCHLORIDE
     Indication: HYPERTENSION
     Dosage: 40 MG, FDS
     Route: 050
  17. PHENOBARBITONE                     /00023201/ [Concomitant]
     Active Substance: PHENOBARBITAL
     Indication: AGITATION
     Dosage: 180 MG, EVERY 8 HOURS (Q8H)
     Route: 050
  18. METHYLPREDISOLONE [Concomitant]
     Active Substance: METHYLPREDNISOLONE
     Dosage: 1 G, OD
     Route: 042
     Dates: start: 20180725

REACTIONS (4)
  - Drug ineffective for unapproved indication [Unknown]
  - Eczema [Unknown]
  - Urticaria [Unknown]
  - Agitation [Recovered/Resolved]

NARRATIVE: CASE EVENT DATE: 20180727
